FAERS Safety Report 14726784 (Version 1)
Quarter: 2018Q2

REPORT INFORMATION
  Report Type: Report from Study
  Country: JP (occurrence: JP)
  Receive Date: 20180406
  Receipt Date: 20180406
  Transmission Date: 20180711
  Serious: Yes (Hospitalization)
  Sender: FDA-Public Use
  Company Number: JP-TEVA-719765ISR

PATIENT
  Age: 30 Year
  Sex: Female

DRUGS (10)
  1. TAKECAB [Concomitant]
     Active Substance: VONOPRAZAN FUMURATE
     Dates: start: 20161031
  2. ALPRAZOLAM. [Concomitant]
     Active Substance: ALPRAZOLAM
     Dates: start: 20161226
  3. TAKEPRON [Concomitant]
     Active Substance: LANSOPRAZOLE
     Dates: end: 20160821
  4. LANSOPRAZOLE. [Concomitant]
     Active Substance: LANSOPRAZOLE
     Dates: start: 20160822, end: 20161030
  5. ONEALFA [Concomitant]
     Active Substance: ALFACALCIDOL
     Dates: start: 20160822
  6. METHYLPREDNISOLONE. [Concomitant]
     Active Substance: METHYLPREDNISOLONE
     Dates: start: 20161129, end: 20161209
  7. GLATIRAMER ACETATE INJECTION [Suspect]
     Active Substance: GLATIRAMER ACETATE
     Indication: RELAPSING-REMITTING MULTIPLE SCLEROSIS
     Dosage: 20 MILLIGRAM/MILLILITERS DAILY;
     Route: 058
     Dates: start: 20160808
  8. PREDNISOLONE. [Concomitant]
     Active Substance: PREDNISOLONE
  9. MAGNESIUM OXIDE. [Concomitant]
     Active Substance: MAGNESIUM OXIDE
     Dates: start: 20160829
  10. REBAMIPIDE [Concomitant]
     Active Substance: REBAMIPIDE
     Dates: start: 20160822

REACTIONS (4)
  - Injection site bruising [Unknown]
  - Multiple sclerosis relapse [Unknown]
  - Injection site erythema [Unknown]
  - Injection site pain [Unknown]

NARRATIVE: CASE EVENT DATE: 20160829
